FAERS Safety Report 7312937-4 (Version None)
Quarter: 2011Q1

REPORT INFORMATION
  Report Type: 
  Country: None (occurrence: None)
  Receive Date: 20110224
  Receipt Date: 20110215
  Transmission Date: 20110831
  Serious: Yes (Other)
  Sender: FDA-Public Use
  Company Number: DE-WATSON-2011-02145

PATIENT
  Age: 14 Year
  Sex: Male

DRUGS (1)
  1. PREDNISONE [Suspect]
     Indication: NEPHROTIC SYNDROME
     Dosage: 48 -80  MG, DAILY

REACTIONS (1)
  - EPIDURAL LIPOMATOSIS [None]
